FAERS Safety Report 11728670 (Version 2)
Quarter: 2015Q4

REPORT INFORMATION
  Report Type: Spontaneous
  Country: JP (occurrence: JP)
  Receive Date: 20151112
  Receipt Date: 20151230
  Transmission Date: 20160304
  Serious: Yes (Hospitalization)
  Sender: FDA-Public Use
  Company Number: JP-JNJFOC-20150923598

PATIENT
  Age: 82 Year
  Sex: Male
  Weight: 49 kg

DRUGS (6)
  1. TRAMCET [Suspect]
     Active Substance: ACETAMINOPHEN\TRAMADOL
     Indication: PAIN
     Dosage: THRICE A DAY
     Route: 048
     Dates: start: 20130917
  2. MAGLAX [Concomitant]
     Active Substance: MAGNESIUM OXIDE
     Indication: CONSTIPATION
     Route: 048
     Dates: start: 20150918
  3. LANSOPRAZOLE. [Concomitant]
     Active Substance: LANSOPRAZOLE
     Indication: GASTROOESOPHAGEAL REFLUX DISEASE
     Route: 048
     Dates: start: 20110124
  4. MARZULENE-S [Concomitant]
     Active Substance: SODIUM GUALENATE
     Indication: GASTRITIS
     Route: 048
     Dates: start: 20121023
  5. BAYASPIRIN [Concomitant]
     Active Substance: ASPIRIN
     Indication: LACUNAR INFARCTION
     Route: 048
     Dates: start: 20110907
  6. MILTAX [Concomitant]
     Active Substance: VIDARABINE
     Indication: PAIN
     Route: 065
     Dates: start: 20100618

REACTIONS (1)
  - Herpes zoster [Recovered/Resolved]

NARRATIVE: CASE EVENT DATE: 20150919
